FAERS Safety Report 8683143 (Version 2)
Quarter: 2013Q4

REPORT INFORMATION
  Report Type: Spontaneous
  Country: NL (occurrence: NL)
  Receive Date: 20120726
  Receipt Date: 20131031
  Transmission Date: 20140711
  Serious: Yes (Hospitalization)
  Sender: FDA-Public Use
  Company Number: NL-009507513-1207NLD006964

PATIENT
  Age: 65 Year
  Sex: Female
  Weight: 69 kg

DRUGS (1)
  1. SYNAPAUSE-E3 [Suspect]
     Dosage: 0.5 MG, BIW
     Route: 067
     Dates: start: 20120710, end: 20120711

REACTIONS (13)
  - Pyrexia [Recovering/Resolving]
  - Chills [Recovering/Resolving]
  - Vaginal discharge [Recovering/Resolving]
  - Burning sensation [Recovering/Resolving]
  - Vulvovaginal burning sensation [Recovering/Resolving]
  - Abdominal discomfort [Recovering/Resolving]
  - Dyspnoea [Recovering/Resolving]
  - Cough [Recovering/Resolving]
  - Palpitations [Recovering/Resolving]
  - Malaise [Recovering/Resolving]
  - Pain [Recovering/Resolving]
  - Ileus [Recovering/Resolving]
  - Vomiting [Recovering/Resolving]
